FAERS Safety Report 12387972 (Version 1)
Quarter: 2016Q2

REPORT INFORMATION
  Report Type: Spontaneous
  Country: CH (occurrence: CH)
  Receive Date: 20160520
  Receipt Date: 20160520
  Transmission Date: 20160815
  Serious: Yes (Other)
  Sender: FDA-Public Use
  Company Number: CH-AMGEN-CHESP2016062520

PATIENT
  Age: 62 Year
  Sex: Female

DRUGS (5)
  1. NELFINAVIR [Suspect]
     Active Substance: NELFINAVIR
     Indication: PRODUCT USED FOR UNKNOWN INDICATION
     Dosage: 2 X2500 MG, QD ON DAY 1-14
     Route: 065
     Dates: start: 2016, end: 2016
  2. CARFILZOMIB [Suspect]
     Active Substance: CARFILZOMIB
     Indication: PRODUCT USED FOR UNKNOWN INDICATION
     Dosage: 20 MG/M2, UNK
     Route: 065
     Dates: start: 201510, end: 2015
  3. BORTEZOMIB [Suspect]
     Active Substance: BORTEZOMIB
     Indication: PRODUCT USED FOR UNKNOWN INDICATION
     Dosage: 1 MG/M2, (1.7 MG TOTAL) ON DAY 1, 4, 8 AND 11
     Route: 065
     Dates: start: 2016, end: 2016
  4. DEXAMETHASONE. [Suspect]
     Active Substance: DEXAMETHASONE
     Indication: PRODUCT USED FOR UNKNOWN INDICATION
     Dosage: 20 MG, ON DAY 1, 2, 4, 5, 8, 9, 11, 12
     Route: 065
     Dates: start: 2016, end: 2016
  5. ZOLEDRONIC ACID [Concomitant]
     Active Substance: ZOLEDRONIC ACID
     Dosage: UNK UNK, Q3MO

REACTIONS (6)
  - Disease progression [Unknown]
  - Dizziness [Unknown]
  - Thrombotic microangiopathy [Unknown]
  - Subarachnoid haemorrhage [Unknown]
  - Acute kidney injury [Unknown]
  - Syncope [Unknown]

NARRATIVE: CASE EVENT DATE: 201510
